FAERS Safety Report 25114944 (Version 1)
Quarter: 2025Q1

REPORT INFORMATION
  Report Type: Report from Study
  Country: US (occurrence: US)
  Receive Date: 20250324
  Receipt Date: 20250324
  Transmission Date: 20250408
  Serious: No
  Sender: ASTELLAS
  Company Number: US-ASTELLAS-2025-AER-014742

PATIENT

DRUGS (2)
  1. AVACINCAPTAD PEGOL [Suspect]
     Active Substance: AVACINCAPTAD PEGOL
     Indication: Dry age-related macular degeneration
     Dates: start: 20250312, end: 20250312
  2. AVACINCAPTAD PEGOL [Suspect]
     Active Substance: AVACINCAPTAD PEGOL

REACTIONS (2)
  - Needle issue [Unknown]
  - Intercepted product preparation error [Unknown]
